FAERS Safety Report 15204808 (Version 1)
Quarter: 2018Q3

REPORT INFORMATION
  Report Type: Report from Study
  Country: CA (occurrence: CA)
  Receive Date: 20180726
  Receipt Date: 20180726
  Transmission Date: 20181010
  Serious: Yes (Other)
  Sender: FDA-Public Use
  Company Number: CA-HLSUS-2018-CA-001110

PATIENT
  Sex: Male

DRUGS (7)
  1. ACETAMINOPHEN. [Concomitant]
     Active Substance: ACETAMINOPHEN
     Dosage: 650MG QID
  2. ABILIFY IM [Concomitant]
     Dosage: 350MG Q 3 WEEKS
     Route: 030
  3. COGENTIN [Concomitant]
     Active Substance: BENZTROPINE MESYLATE
     Dosage: 1MG DAILY
  4. GLICLAZIDE [Concomitant]
     Active Substance: GLICLAZIDE
     Dosage: 60MG DAILY
  5. LANTUS [Concomitant]
     Active Substance: INSULIN GLARGINE
     Dosage: 15 UNITS Q HS
  6. CLOZARIL [Suspect]
     Active Substance: CLOZAPINE
     Indication: SCHIZOPHRENIA
     Route: 048
     Dates: end: 20120620
  7. BISOPROLOL [Concomitant]
     Active Substance: BISOPROLOL
     Dosage: 2.5MG DAILY

REACTIONS (6)
  - Presyncope [Unknown]
  - Hypertrophic cardiomyopathy [Unknown]
  - Myocardial ischaemia [Unknown]
  - Scan myocardial perfusion abnormal [Unknown]
  - Atrioventricular block [Unknown]
  - Left ventricle outflow tract obstruction [Unknown]
